FAERS Safety Report 24387335 (Version 1)
Quarter: 2024Q4

REPORT INFORMATION
  Report Type: Spontaneous
  Country: US (occurrence: US)
  Receive Date: 20241002
  Receipt Date: 20241002
  Transmission Date: 20250115
  Serious: Yes (Hospitalization)
  Sender: BAYER
  Company Number: US-BAYER-2024A136352

PATIENT

DRUGS (1)
  1. MIDOL COMPLETE [Suspect]
     Active Substance: ACETAMINOPHEN\CAFFEINE\PYRILAMINE MALEATE
     Dosage: 8 DF

REACTIONS (2)
  - Hospitalisation [Unknown]
  - Extra dose administered [Unknown]
